FAERS Safety Report 5684188-0 (Version None)
Quarter: 2008Q1

REPORT INFORMATION
  Report Type: 
  Country: None (occurrence: None)
  Receive Date: 20080328
  Receipt Date: 20070905
  Transmission Date: 20080703
  Serious: No
  Sender: FDA-Public Use
  Company Number: US-AMGEN-US241869

PATIENT
  Sex: Female

DRUGS (5)
  1. NEULASTA [Suspect]
     Indication: CHEMOTHERAPY
     Route: 058
     Dates: start: 20070804
  2. FOLIC ACID [Concomitant]
  3. PRILOSEC [Concomitant]
     Route: 065
  4. GABAPENTIN [Concomitant]
     Route: 065
  5. BALSALAZIDE DISODIUM [Concomitant]
     Route: 065

REACTIONS (3)
  - CHILLS [None]
  - PYREXIA [None]
  - RASH PRURITIC [None]
